FAERS Safety Report 7719447-0 (Version None)
Quarter: 2011Q3

REPORT INFORMATION
  Report Type: 
  Country: None (occurrence: None)
  Receive Date: 20110830
  Receipt Date: 20110819
  Transmission Date: 20111222
  Serious: Yes (Other)
  Sender: FDA-Public Use
  Company Number: PHHY2011BE75915

PATIENT
  Age: 5 Month
  Sex: Female

DRUGS (1)
  1. METHERGINE [Suspect]
     Dosage: 15 DRP, UNK
     Dates: start: 20000101

REACTIONS (2)
  - WRONG DRUG ADMINISTERED [None]
  - VOMITING [None]
